FAERS Safety Report 9219170 (Version 2)
Quarter: 2013Q2

REPORT INFORMATION
  Report Type: Spontaneous
  Country: US (occurrence: US)
  Receive Date: 20130409
  Receipt Date: 20130415
  Transmission Date: 20140414
  Serious: Yes (Hospitalization, Other)
  Sender: FDA-Public Use
  Company Number: US-JNJFOC-20130400491

PATIENT
  Sex: Male

DRUGS (2)
  1. TYLENOL COLD AND FLU SEVERE [Suspect]
     Indication: NASOPHARYNGITIS
     Dosage: 2 DOSES, EVERY 4 HOURS, 3 TIMES
     Route: 048
  2. SOTALOL [Concomitant]
     Indication: CARDIAC DISORDER
     Route: 065

REACTIONS (2)
  - Blood pressure decreased [Recovered/Resolved]
  - Syncope [Recovered/Resolved]
